FAERS Safety Report 4410539-0 (Version None)
Quarter: 2004Q3

REPORT INFORMATION
  Report Type: 
  Country: None (occurrence: None)
  Receive Date: 20040726
  Receipt Date: 20040719
  Transmission Date: 20050211
  Serious: Yes (Hospitalization)
  Sender: FDA-Public Use
  Company Number: 200412918BCC

PATIENT
  Age: 75 Year
  Sex: Female
  Weight: 104 kg

DRUGS (8)
  1. ASPIRIN [Suspect]
     Indication: PROPHYLAXIS
     Dosage: 81 MG, QD, ORAL
     Route: 048
     Dates: start: 20030101, end: 20040610
  2. ZOCOR [Concomitant]
  3. HYDROCHLOROTHIAZIDE [Concomitant]
  4. CAPTOPRIL [Concomitant]
  5. GERITOL [Concomitant]
  6. COMPLETE MULTI-VITAMIN WITH IRON [Concomitant]
  7. TYLENOL [Concomitant]
  8. TOPICAL CREAM [Concomitant]

REACTIONS (12)
  - ANAEMIA [None]
  - ASTHENIA [None]
  - COGNITIVE DISORDER [None]
  - DIFFICULTY IN WALKING [None]
  - HAEMATOCHEZIA [None]
  - HAEMORRHAGE [None]
  - INSOMNIA [None]
  - MEMORY IMPAIRMENT [None]
  - OVERDOSE [None]
  - PHARMACEUTICAL PRODUCT COMPLAINT [None]
  - POOR PERIPHERAL CIRCULATION [None]
  - PULSE ABSENT [None]
